FAERS Safety Report 4918048-7 (Version None)
Quarter: 2006Q1

REPORT INFORMATION
  Report Type: 
  Country: None (occurrence: None)
  Receive Date: 20060221
  Receipt Date: 20060202
  Transmission Date: 20060701
  Serious: Yes (Hospitalization)
  Sender: FDA-Public Use
  Company Number: JP-MERCK-0602USA01373

PATIENT
  Age: 68 Year
  Sex: Female
  Weight: 59 kg

DRUGS (4)
  1. ZOCOR [Suspect]
     Indication: HYPERLIPIDAEMIA
     Route: 048
     Dates: start: 20031008, end: 20050909
  2. ZOCOR [Suspect]
     Route: 048
     Dates: end: 19961213
  3. ZOCOR [Suspect]
     Route: 048
     Dates: start: 20000117
  4. MAINTATE [Concomitant]
     Route: 048
     Dates: start: 20031008, end: 20050909

REACTIONS (3)
  - FATIGUE [None]
  - LIVER DISORDER [None]
  - NAUSEA [None]
